FAERS Safety Report 21140836 (Version 1)
Quarter: 2022Q3

REPORT INFORMATION
  Report Type: Spontaneous
  Country: CN (occurrence: CN)
  Receive Date: 20220728
  Receipt Date: 20220728
  Transmission Date: 20221027
  Serious: Yes (Death, Hospitalization)
  Sender: FDA-Public Use
  Company Number: CN-STRIDES ARCOLAB LIMITED-2022SP009372

PATIENT
  Age: 15 Year
  Sex: Female

DRUGS (1)
  1. COLCHICINE [Suspect]
     Active Substance: COLCHICINE
     Indication: Product used for unknown indication
     Dosage: 1 MILLIGRAM/KILOGRAM, UNKNOWN
     Route: 048

REACTIONS (14)
  - Bone marrow failure [Fatal]
  - Myelosuppression [Fatal]
  - Gastrointestinal injury [Fatal]
  - Liver injury [Fatal]
  - Muscle injury [Fatal]
  - Myocardial injury [Fatal]
  - Sepsis [Fatal]
  - Shock haemorrhagic [Fatal]
  - Multiple organ dysfunction syndrome [Fatal]
  - Respiratory failure [Fatal]
  - Acute kidney injury [Fatal]
  - Disseminated intravascular coagulation [Fatal]
  - Toxicity to various agents [Fatal]
  - Overdose [Fatal]
